FAERS Safety Report 6813046-0 (Version None)
Quarter: 2010Q3

REPORT INFORMATION
  Report Type: 
  Country: None (occurrence: None)
  Receive Date: 20100701
  Receipt Date: 20100623
  Transmission Date: 20110219
  Serious: Yes (Hospitalization, Other)
  Sender: FDA-Public Use
  Company Number: FR-BAXTER-2010BH014508

PATIENT
  Age: 9 Year
  Sex: Female
  Weight: 29 kg

DRUGS (4)
  1. ENDOXAN BAXTER [Suspect]
     Indication: PRECURSOR T-LYMPHOBLASTIC LYMPHOMA/LEUKAEMIA
     Route: 042
     Dates: start: 20100501
  2. PURINETHOL [Suspect]
     Indication: PRECURSOR T-LYMPHOBLASTIC LYMPHOMA/LEUKAEMIA
     Route: 048
     Dates: start: 20100501
  3. CYTARABINE [Suspect]
     Indication: PRECURSOR T-LYMPHOBLASTIC LYMPHOMA/LEUKAEMIA
     Route: 042
     Dates: start: 20100503
  4. KIDROLASE [Suspect]
     Indication: PRECURSOR T-LYMPHOBLASTIC LYMPHOMA/LEUKAEMIA
     Route: 042
     Dates: start: 20100326, end: 20100430

REACTIONS (4)
  - FEBRILE BONE MARROW APLASIA [None]
  - HEPATITIS CHOLESTATIC [None]
  - PANCYTOPENIA [None]
  - VOMITING [None]
